FAERS Safety Report 21053858 (Version 1)
Quarter: 2022Q3

REPORT INFORMATION
  Report Type: Spontaneous
  Country: US (occurrence: US)
  Receive Date: 20220707
  Receipt Date: 20220707
  Transmission Date: 20221027
  Serious: No
  Sender: FDA-Public Use
  Company Number: US-PFIZER INC-202200931171

PATIENT
  Age: 68 Year
  Sex: Female

DRUGS (1)
  1. NICOTROL [Suspect]
     Active Substance: NICOTINE
     Dosage: UNK (KIT WITH 168 CARTRIDGES)

REACTIONS (3)
  - Back disorder [Unknown]
  - Illness [Unknown]
  - Device dispensing error [Unknown]
